FAERS Safety Report 7264893-5 (Version None)
Quarter: 2011Q1

REPORT INFORMATION
  Report Type: 
  Country: None (occurrence: None)
  Receive Date: 20110131
  Receipt Date: 20101118
  Transmission Date: 20110831
  Serious: Yes (Hospitalization)
  Sender: FDA-Public Use
  Company Number: US-BAYER-201034651NA

PATIENT
  Sex: Female
  Weight: 54.422 kg

DRUGS (8)
  1. YAZ [Suspect]
     Indication: MENSTRUATION IRREGULAR
     Dosage: UNK
     Dates: start: 20080710
  2. HYDROCODONE BITARTRATE/HOMATROPINE METHYBROMIDE [Concomitant]
     Indication: ANTITUSSIVE THERAPY
     Dosage: 5-1.5/5 SYRUP
     Route: 048
     Dates: start: 20080827
  3. BENZONATATE [Concomitant]
     Indication: ANTITUSSIVE THERAPY
     Dosage: 100 MG, CAP
     Route: 048
     Dates: start: 20080815
  4. IBUPROFEN [Concomitant]
     Indication: ANTIINFLAMMATORY THERAPY
     Dosage: 600 MG, TAB
     Route: 048
     Dates: start: 20070914
  5. YASMIN [Suspect]
     Indication: PRODUCT USED FOR UNKNOWN INDICATION
     Dosage: UNK
  6. YAZ [Suspect]
     Indication: MIGRAINE
  7. FLUTICASONE PROPIONATE [Concomitant]
     Indication: RHINITIS ALLERGIC
     Dosage: 50 ?G SPRAY, 2 SPR./ NOSTRIL DAILY
     Route: 045
     Dates: start: 20080312
  8. TOPAMAX [Concomitant]
     Indication: MIGRAINE PROPHYLAXIS
     Dosage: 75 MG, BID
     Route: 048
     Dates: start: 20070601

REACTIONS (3)
  - OEDEMA PERIPHERAL [None]
  - PAIN IN EXTREMITY [None]
  - DEEP VEIN THROMBOSIS [None]
